FAERS Safety Report 5012233-4 (Version None)
Quarter: 2006Q2

REPORT INFORMATION
  Report Type: 
  Country: None (occurrence: None)
  Receive Date: 20060410
  Receipt Date: 20060210
  Transmission Date: 20061013
  Serious: Yes (Hospitalization)
  Sender: FDA-Public Use
  Company Number: 06P-163-0324553-00

PATIENT
  Age: 64 Year
  Sex: Female

DRUGS (3)
  1. DEPAKOTE [Suspect]
     Indication: CONVULSION
     Dosage: 250 MG, 1 IN 1 D, PER ORAL
     Route: 048
     Dates: start: 20060101
  2. CHOLESTEROL MEDICATION [Concomitant]
  3. POTASSIUM [Concomitant]

REACTIONS (3)
  - BLOOD POTASSIUM DECREASED [None]
  - SOMNOLENCE [None]
  - URINARY TRACT INFECTION [None]
